FAERS Safety Report 5754317-9 (Version None)
Quarter: 2008Q2

REPORT INFORMATION
  Report Type: 
  Country: None (occurrence: None)
  Receive Date: 20080530
  Receipt Date: 20080519
  Transmission Date: 20081010
  Serious: Yes (Other)
  Sender: FDA-Public Use
  Company Number: US-PFIZER INC-2008001129

PATIENT
  Sex: Female
  Weight: 59 kg

DRUGS (2)
  1. CHANTIX [Suspect]
  2. DRUG, UNSPECIFIED [Suspect]

REACTIONS (16)
  - ACARODERMATITIS [None]
  - BLINDNESS [None]
  - DIPLOPIA [None]
  - DIZZINESS [None]
  - DRUG HYPERSENSITIVITY [None]
  - ERYTHEMA [None]
  - EYE DISORDER [None]
  - HYPERTENSION [None]
  - IMPAIRED DRIVING ABILITY [None]
  - LIP SWELLING [None]
  - MUSCLE TWITCHING [None]
  - PRURITUS [None]
  - RASH [None]
  - SKIN EXFOLIATION [None]
  - UPPER RESPIRATORY TRACT INFECTION [None]
  - VISUAL DISTURBANCE [None]
